FAERS Safety Report 25647781 (Version 1)
Quarter: 2025Q3

REPORT INFORMATION
  Report Type: Report from Study
  Country: US (occurrence: US)
  Receive Date: 20250806
  Receipt Date: 20250806
  Transmission Date: 20251020
  Serious: No
  Sender: SUNOVION
  Company Number: US-SUMITOMO PHARMA SWITZERLAND GMBH-2024SPA005853

PATIENT
  Age: 72 Year
  Sex: Male

DRUGS (1)
  1. ORGOVYX [Suspect]
     Active Substance: RELUGOLIX
     Indication: Prostate cancer
     Dosage: 120 MG, QD
     Route: 048
     Dates: start: 20241205

REACTIONS (11)
  - Glycosylated haemoglobin increased [Recovering/Resolving]
  - Haemorrhoids [Unknown]
  - Heart rate increased [Unknown]
  - Dysbiosis [Unknown]
  - Fall [Unknown]
  - Spinal column injury [Unknown]
  - Renal cyst [Unknown]
  - Blood cholesterol increased [Unknown]
  - Insomnia [Unknown]
  - Myalgia [Unknown]
  - Incorrect dose administered [Recovered/Resolved]
